FAERS Safety Report 20474102 (Version 4)
Quarter: 2022Q1

REPORT INFORMATION
  Report Type: Other
  Country: CA (occurrence: CA)
  Receive Date: 20220215
  Receipt Date: 20220328
  Transmission Date: 20220423
  Serious: Yes (Other)
  Sender: FDA-Public Use
  Company Number: CA-002147023-NVSC2022CA026036

PATIENT
  Sex: Male
  Weight: 81.6 kg

DRUGS (4)
  1. RANIBIZUMAB [Suspect]
     Active Substance: RANIBIZUMAB
     Indication: Neovascular age-related macular degeneration
     Dosage: 0.5 MG (LEFT EYE)
     Route: 031
     Dates: start: 20210426
  2. RANIBIZUMAB [Suspect]
     Active Substance: RANIBIZUMAB
     Route: 031
     Dates: start: 20210329, end: 20210913
  3. BROLUCIZUMAB [Concomitant]
     Active Substance: BROLUCIZUMAB
     Indication: Product used for unknown indication
     Route: 065
  4. AFLIBERCEPT [Concomitant]
     Active Substance: AFLIBERCEPT
     Indication: Product used for unknown indication
     Route: 065

REACTIONS (2)
  - Retinal oedema [Not Recovered/Not Resolved]
  - Subretinal fluid [Not Recovered/Not Resolved]

NARRATIVE: CASE EVENT DATE: 20210913
